FAERS Safety Report 25429207 (Version 1)
Quarter: 2025Q2

REPORT INFORMATION
  Report Type: Spontaneous
  Country: AT (occurrence: AT)
  Receive Date: 20250612
  Receipt Date: 20250612
  Transmission Date: 20250717
  Serious: Yes (Other)
  Sender: SANDOZ
  Company Number: AT-EVER-2025-Peme-220

PATIENT
  Age: 56 Year
  Sex: Female

DRUGS (7)
  1. CARBOPLATIN [Suspect]
     Active Substance: CARBOPLATIN
     Indication: Non-small cell lung cancer metastatic
     Route: 065
     Dates: start: 202308, end: 202311
  2. DURVALUMAB [Suspect]
     Active Substance: DURVALUMAB
     Dosage: MAINTENANCE THERAPY CONSISTING OF 4  WEEKS OF PEMETREXED PLUS DURVALUMAB  AND ONE DOSE OF TREMELIMUM
     Route: 065
     Dates: start: 202312
  3. DURVALUMAB [Suspect]
     Active Substance: DURVALUMAB
     Indication: Non-small cell lung cancer metastatic
     Route: 065
     Dates: start: 202308, end: 202311
  4. PEMETREXED [Suspect]
     Active Substance: PEMETREXED
     Indication: Non-small cell lung cancer metastatic
     Route: 065
     Dates: start: 202308, end: 202311
  5. PEMETREXED [Suspect]
     Active Substance: PEMETREXED
     Dosage: MAINTENANCE THERAPY CONSISTING OF 4  WEEKS OF PEMETREXED PLUS DURVALUMAB  AND ONE DOSE OF TREMELIMUM
     Route: 065
     Dates: start: 202312
  6. TREMELIMUMAB [Suspect]
     Active Substance: TREMELIMUMAB
     Indication: Non-small cell lung cancer metastatic
     Route: 065
     Dates: start: 202308, end: 202311
  7. TREMELIMUMAB [Suspect]
     Active Substance: TREMELIMUMAB
     Route: 065
     Dates: start: 202312

REACTIONS (2)
  - Pneumonitis [Recovered/Resolved]
  - Polyarthritis [Recovered/Resolved]
